FAERS Safety Report 11623154 (Version 1)
Quarter: 2015Q4

REPORT INFORMATION
  Report Type: Spontaneous
  Country: US (occurrence: US)
  Receive Date: 20151013
  Receipt Date: 20151013
  Transmission Date: 20160304
  Serious: No
  Sender: FDA-Public Use
  Company Number: US-JNJFOC-20150205017

PATIENT
  Age: 54 Year
  Sex: Female
  Weight: 90.72 kg

DRUGS (1)
  1. TYLENOL EXTRA STRENGTH [Suspect]
     Active Substance: ACETAMINOPHEN
     Indication: PRURITUS
     Dosage: AS NEEDED
     Route: 048

REACTIONS (3)
  - Product use issue [Unknown]
  - Inappropriate schedule of drug administration [Unknown]
  - Therapeutic response unexpected [Unknown]
